FAERS Safety Report 6701044-7 (Version None)
Quarter: 2010Q2

REPORT INFORMATION
  Report Type: 
  Country: None (occurrence: None)
  Receive Date: 20100428
  Receipt Date: 20100420
  Transmission Date: 20101027
  Serious: Yes (Hospitalization)
  Sender: FDA-Public Use
  Company Number: US-SANOFI-AVENTIS-2010SA023073

PATIENT
  Age: 43 Year
  Sex: Female

DRUGS (2)
  1. LANTUS [Suspect]
     Dosage: DOSE:40 UNIT(S)
     Route: 058
  2. OPTICLICK [Suspect]

REACTIONS (2)
  - RENAL FAILURE [None]
  - VISUAL IMPAIRMENT [None]
